FAERS Safety Report 8098394-1 (Version None)
Quarter: 2012Q1

REPORT INFORMATION
  Report Type: 
  Country: None (occurrence: None)
  Receive Date: 20120131
  Receipt Date: 20120120
  Transmission Date: 20120608
  Serious: Yes (Death, Other)
  Sender: FDA-Public Use
  Company Number: RO-MPIJNJ-2011-06606

PATIENT

DRUGS (2)
  1. DOXORUBICIN HCL [Concomitant]
     Indication: MULTIPLE MYELOMA
     Dosage: UNK
     Dates: start: 20070101
  2. VELCADE [Suspect]
     Indication: MULTIPLE MYELOMA
     Dosage: UNK
     Route: 065
     Dates: start: 20070101

REACTIONS (9)
  - CONSTIPATION [None]
  - MOUTH ULCERATION [None]
  - DIZZINESS [None]
  - DIARRHOEA [None]
  - HYPERTENSION [None]
  - COUGH [None]
  - DECREASED APPETITE [None]
  - HALLUCINATION [None]
  - HERPES ZOSTER [None]
